FAERS Safety Report 19412727 (Version 1)
Quarter: 2021Q2

REPORT INFORMATION
  Report Type: Spontaneous
  Country: US (occurrence: US)
  Receive Date: 20210614
  Receipt Date: 20210614
  Transmission Date: 20210717
  Serious: No
  Sender: FDA-Public Use
  Company Number: US-PFIZER INC-2021289154

PATIENT
  Age: 73 Year
  Sex: Female

DRUGS (1)
  1. LATANOPROST. [Suspect]
     Active Substance: LATANOPROST
     Dosage: 1 DROP TO EACH EYE (AT BEDTIME)

REACTIONS (3)
  - Product storage error [Unknown]
  - Ocular hyperaemia [Unknown]
  - Eye irritation [Unknown]
